FAERS Safety Report 4667977-0 (Version None)
Quarter: 2005Q2

REPORT INFORMATION
  Report Type: 
  Country: None (occurrence: None)
  Receive Date: 20050519
  Receipt Date: 20050510
  Transmission Date: 20051028
  Serious: Yes (Other)
  Sender: FDA-Public Use
  Company Number: 2005-05-0682

PATIENT
  Age: 65 Year
  Sex: Male

DRUGS (1)
  1. INTRON A [Suspect]
     Indication: CHRONIC MYELOID LEUKAEMIA
     Dosage: 6 MU QD SUBCUTANEOUS
     Route: 058
     Dates: start: 19941116, end: 19950109

REACTIONS (1)
  - ASEPTIC NECROSIS BONE [None]
